FAERS Safety Report 7760257-6 (Version None)
Quarter: 2011Q3

REPORT INFORMATION
  Report Type: 
  Country: None (occurrence: None)
  Receive Date: 20110919
  Receipt Date: 20110909
  Transmission Date: 20111222
  Serious: Yes (Hospitalization)
  Sender: FDA-Public Use
  Company Number: FR-GLAXOSMITHKLINE-B0746168A

PATIENT
  Sex: Male

DRUGS (11)
  1. ZOFRAN [Suspect]
     Indication: PRODUCT USED FOR UNKNOWN INDICATION
     Route: 042
     Dates: start: 20110726, end: 20110816
  2. ERBITUX [Suspect]
     Indication: LARYNGEAL CANCER
     Dosage: 460MG CYCLIC
     Route: 042
     Dates: start: 20110701, end: 20110816
  3. RANITIDINE [Concomitant]
     Indication: PREMEDICATION
     Dosage: 1AMP PER DAY
     Route: 065
  4. FRESUBIN [Concomitant]
     Route: 065
  5. CARBOPLATIN [Suspect]
     Indication: LARYNGEAL CANCER
     Route: 042
     Dates: start: 20110726, end: 20110816
  6. POLARAMINE [Concomitant]
     Indication: PREMEDICATION
     Dosage: 1AMP PER DAY
     Route: 065
  7. CLINUTREN [Concomitant]
     Route: 065
  8. SOLU-MEDROL [Concomitant]
     Indication: PREMEDICATION
     Dosage: 80MG PER DAY
     Route: 065
  9. RADIOTHERAPY [Concomitant]
  10. FLUOROURACIL [Suspect]
     Indication: LARYNGEAL CANCER
     Dosage: 1100MG PER DAY
     Route: 042
     Dates: start: 20110726, end: 20110818
  11. DURAGESIC-100 [Concomitant]
     Route: 065

REACTIONS (4)
  - VENTRICULAR TACHYCARDIA [None]
  - MALAISE [None]
  - HYPERHIDROSIS [None]
  - MYOCARDITIS [None]
